FAERS Safety Report 9205953 (Version 1)
Quarter: 2013Q2

REPORT INFORMATION
  Report Type: Spontaneous
  Country: GB (occurrence: None)
  Receive Date: 20130401
  Receipt Date: 20130401
  Transmission Date: 20140414
  Serious: Yes (Other)
  Sender: FDA-Public Use
  Company Number: MC201300147

PATIENT
  Sex: 0

DRUGS (3)
  1. ANGIOMAX, ANGIOX (BIVALIRUDIN) INJECTION [Suspect]
     Route: 040
  2. ASA (ASA) [Concomitant]
  3. PRASUGREL (PRASUGREL) [Concomitant]

REACTIONS (2)
  - Coronary artery dissection [None]
  - Thrombosis in device [None]
